FAERS Safety Report 8595927 (Version 3)
Quarter: 2014Q1

REPORT INFORMATION
  Report Type: Spontaneous
  Country: US (occurrence: US)
  Receive Date: 20120605
  Receipt Date: 20140131
  Transmission Date: 20141002
  Serious: Yes (Other)
  Sender: FDA-Public Use
  Company Number: US-ASTRAZENECA-2012SE35456

PATIENT
  Age: 42 Year
  Sex: Male
  Weight: 86.2 kg

DRUGS (19)
  1. NEXIUM [Suspect]
     Indication: HIATUS HERNIA
     Route: 048
  2. NEXIUM [Suspect]
     Indication: GASTROOESOPHAGEAL REFLUX DISEASE
     Route: 048
  3. NEXIUM [Suspect]
     Indication: ULCER
     Route: 048
  4. NEXIUM [Suspect]
     Indication: HIATUS HERNIA
     Dosage: TWICE A DAY
     Route: 048
  5. NEXIUM [Suspect]
     Indication: GASTROOESOPHAGEAL REFLUX DISEASE
     Dosage: TWICE A DAY
     Route: 048
  6. NEXIUM [Suspect]
     Indication: ULCER
     Dosage: TWICE A DAY
     Route: 048
  7. PRILOSEC [Suspect]
     Route: 048
  8. PRILOSEC OTC [Suspect]
     Route: 048
  9. ACIPHEX [Suspect]
     Route: 065
  10. ZANTAC [Concomitant]
  11. PEPCID [Concomitant]
  12. TUMS [Concomitant]
  13. ROLAIDS [Concomitant]
  14. LORTAB [Concomitant]
  15. KLONOPIN [Concomitant]
  16. XANAX [Concomitant]
  17. ENALPRIL [Concomitant]
  18. PROZAC [Concomitant]
  19. DIOVAN [Concomitant]

REACTIONS (12)
  - Hip fracture [Unknown]
  - Transient ischaemic attack [Unknown]
  - Cervical vertebral fracture [Unknown]
  - Osteoporosis [Unknown]
  - Thoracic vertebral fracture [Unknown]
  - Bone disorder [Unknown]
  - Systemic lupus erythematosus [Unknown]
  - Upper limb fracture [Unknown]
  - Arthritis [Unknown]
  - Calcium deficiency [Unknown]
  - Rheumatoid arthritis [Unknown]
  - Androgen deficiency [Unknown]
